FAERS Safety Report 13226155 (Version 1)
Quarter: 2017Q1

REPORT INFORMATION
  Report Type: Other
  Country: KR (occurrence: KR)
  Receive Date: 20170213
  Receipt Date: 20170213
  Transmission Date: 20170428
  Serious: Yes (Other)
  Sender: FDA-Public Use
  Company Number: KR-ACTELION-A-CH2017-149394

PATIENT
  Age: 23 Year
  Sex: Female

DRUGS (4)
  1. BOSENTAN. [Suspect]
     Active Substance: BOSENTAN
     Indication: PULMONARY ARTERIAL HYPERTENSION
     Dosage: UNK
     Route: 048
  2. OXYGEN. [Concomitant]
     Active Substance: OXYGEN
  3. FUROSEMIDE. [Concomitant]
     Active Substance: FUROSEMIDE
  4. DIGOXIN. [Concomitant]
     Active Substance: DIGOXIN

REACTIONS (11)
  - Acute kidney injury [Unknown]
  - Post procedural haemorrhage [Unknown]
  - Haematoma evacuation [Unknown]
  - Dyspnoea [Recovering/Resolving]
  - Pulmonary artery banding [Unknown]
  - Orthopnoea [Recovering/Resolving]
  - Cardiac septal defect repair [Unknown]
  - Haemodialysis [Unknown]
  - Oxygen saturation abnormal [Recovering/Resolving]
  - Pulmonary artery dilatation [Unknown]
  - Nephropathy toxic [Unknown]
